FAERS Safety Report 9029020 (Version 1)
Quarter: 2013Q1

REPORT INFORMATION
  Report Type: Spontaneous
  Country: BR (occurrence: BR)
  Receive Date: 20130122
  Receipt Date: 20130122
  Transmission Date: 20140127
  Serious: Yes (Hospitalization)
  Sender: FDA-Public Use
  Company Number: PHHY2013BR005573

PATIENT
  Sex: Female
  Weight: 62 kg

DRUGS (2)
  1. GILENYA [Suspect]
     Indication: MULTIPLE SCLEROSIS
     Dosage: UNK UKN, UNK
     Route: 048
     Dates: start: 20130116
  2. NATRILIX SR [Concomitant]
     Dosage: 1.5 MG, UNK

REACTIONS (2)
  - Somnolence [Unknown]
  - Atrioventricular block second degree [Unknown]
